FAERS Safety Report 21595670 (Version 3)
Quarter: 2023Q2

REPORT INFORMATION
  Report Type: Spontaneous
  Country: US (occurrence: US)
  Receive Date: 20221115
  Receipt Date: 20230405
  Transmission Date: 20230721
  Serious: No
  Sender: FDA-Public Use
  Company Number: US-BRISTOL-MYERS SQUIBB COMPANY-2022-137290

PATIENT
  Age: 69 Year
  Sex: Female
  Weight: 64.41 kg

DRUGS (1)
  1. CAMZYOS [Suspect]
     Active Substance: MAVACAMTEN
     Indication: Product used for unknown indication
     Route: 048

REACTIONS (5)
  - Blood pressure decreased [Unknown]
  - Dyspnoea [Unknown]
  - Hunger [Unknown]
  - Weight increased [Unknown]
  - Arthropod bite [Unknown]

NARRATIVE: CASE EVENT DATE: 20221011
